FAERS Safety Report 23134664 (Version 2)
Quarter: 2023Q4

REPORT INFORMATION
  Report Type: Report from Study
  Country: CA (occurrence: CA)
  Receive Date: 20231101
  Receipt Date: 20231205
  Transmission Date: 20240110
  Serious: Yes (Hospitalization, Other)
  Sender: FDA-Public Use
  Company Number: CA-ABBVIE-5458072

PATIENT
  Sex: Female
  Weight: 72 kg

DRUGS (7)
  1. RINVOQ [Suspect]
     Active Substance: UPADACITINIB
     Indication: Colitis ulcerative
     Dosage: LAST ADMIN DATE: 2023?FORM STRENGTH: 15 MILLIGRAM
     Route: 048
     Dates: start: 20231003
  2. RINVOQ [Suspect]
     Active Substance: UPADACITINIB
     Indication: Colitis ulcerative
     Dosage: FORM STRENGTH: 15 MILLIGRAM, FIRST ADMIN DATE 2023
     Route: 048
  3. POLYETHYLENE GLYCOL 3350 [Concomitant]
     Active Substance: POLYETHYLENE GLYCOL 3350
     Indication: Product used for unknown indication
     Dates: start: 20231026
  4. PREDNISONE [Suspect]
     Active Substance: PREDNISONE
     Indication: Product used for unknown indication
     Route: 065
  5. ENTYVIO [Concomitant]
     Active Substance: VEDOLIZUMAB
     Indication: Colitis
     Dosage: 8 WEEK
  6. ENTYVIO [Concomitant]
     Active Substance: VEDOLIZUMAB
     Indication: Colitis
     Dosage: 4 WEEK
  7. IRON [Suspect]
     Active Substance: IRON
     Indication: Product used for unknown indication
     Route: 065
     Dates: start: 20231021

REACTIONS (6)
  - Colitis ulcerative [Unknown]
  - Urinary tract infection [Unknown]
  - Constipation [Unknown]
  - Confusional state [Recovered/Resolved]
  - Escherichia sepsis [Recovered/Resolved]
  - White blood cell count decreased [Unknown]

NARRATIVE: CASE EVENT DATE: 20230101
